FAERS Safety Report 14751308 (Version 1)
Quarter: 2018Q2

REPORT INFORMATION
  Report Type: Spontaneous
  Country: CZ (occurrence: CZ)
  Receive Date: 20180412
  Receipt Date: 20180412
  Transmission Date: 20180711
  Serious: Yes (Death, Other)
  Sender: FDA-Public Use
  Company Number: CZ-AMGEN-CZESP2018046780

PATIENT
  Age: 65 Year
  Sex: Female

DRUGS (8)
  1. VIGANTOL [Concomitant]
     Active Substance: CHOLECALCIFEROL
     Dosage: UNK
  2. DOCETAXEL. [Concomitant]
     Active Substance: DOCETAXEL
  3. OSIMERTINIB. [Concomitant]
     Active Substance: OSIMERTINIB
     Dosage: 80 MG, QD
  4. XGEVA [Suspect]
     Active Substance: DENOSUMAB
     Dosage: UNK
     Route: 065
     Dates: start: 20160714
  5. CALTRATE [Concomitant]
     Active Substance: CALCIUM CARBONATE
     Dosage: UNK
  6. XGEVA [Suspect]
     Active Substance: DENOSUMAB
     Indication: METASTASES TO BONE
     Dosage: 120 MG, Q4WK
     Route: 065
     Dates: end: 2015
  7. ERLOTINIB [Concomitant]
     Active Substance: ERLOTINIB
     Dosage: UNK
  8. PEMETREXED. [Concomitant]
     Active Substance: PEMETREXED
     Dosage: UNK

REACTIONS (12)
  - Lung adenocarcinoma [Fatal]
  - Blood disorder [Unknown]
  - Dehydration [Unknown]
  - Paronychia [Unknown]
  - Osteonecrosis of jaw [Recovered/Resolved]
  - Diarrhoea [Unknown]
  - Renal failure [Unknown]
  - Alopecia [Unknown]
  - General physical health deterioration [Unknown]
  - Basal cell carcinoma [Unknown]
  - Rash [Unknown]
  - Dyspepsia [Unknown]

NARRATIVE: CASE EVENT DATE: 2015
